FAERS Safety Report 4615337-0 (Version None)
Quarter: 2005Q1

REPORT INFORMATION
  Report Type: 
  Country: None (occurrence: None)
  Receive Date: 20050317
  Receipt Date: 20050308
  Transmission Date: 20050727
  Serious: Yes (Hospitalization)
  Sender: FDA-Public Use
  Company Number: 2005AP01146

PATIENT
  Age: 62 Year
  Sex: Female
  Weight: 65.5 kg

DRUGS (6)
  1. IRESSA [Suspect]
     Indication: NON-SMALL CELL LUNG CANCER
     Dosage: 250 MG DAILY PO
     Route: 048
     Dates: start: 20030326, end: 20030608
  2. IRESSA [Suspect]
     Indication: NON-SMALL CELL LUNG CANCER
     Dosage: 250 MG DAILY PO
     Route: 048
     Dates: start: 20030624, end: 20030831
  3. IRESSA [Suspect]
     Indication: NON-SMALL CELL LUNG CANCER
     Dosage: 250 MG QOD PO
     Route: 048
     Dates: start: 20030901, end: 20030116
  4. AMLODIN [Concomitant]
  5. CODEINE PHOSPHATE [Concomitant]
  6. MAGNESIUM OXIDE [Concomitant]

REACTIONS (7)
  - DERMATITIS [None]
  - DRY SKIN [None]
  - EXCESSIVE GRANULATION TISSUE [None]
  - FOLLICULITIS [None]
  - INGROWING NAIL [None]
  - PAIN IN EXTREMITY [None]
  - PARONYCHIA [None]
